FAERS Safety Report 6941833-7 (Version None)
Quarter: 2010Q3

REPORT INFORMATION
  Report Type: 
  Country: None (occurrence: None)
  Receive Date: 20100826
  Receipt Date: 20100818
  Transmission Date: 20110219
  Serious: Yes (Other)
  Sender: FDA-Public Use
  Company Number: CL-PFIZER INC-2010105162

PATIENT
  Sex: Female

DRUGS (5)
  1. CELECOXIB [Suspect]
     Indication: RHEUMATOID ARTHRITIS
     Dosage: UNK
  2. AZULFIDINE [Suspect]
     Indication: RHEUMATOID ARTHRITIS
     Dosage: 500 MG, 1X/DAY
     Dates: start: 20100814, end: 20100817
  3. ENALAPRIL [Concomitant]
     Indication: HYPERTENSION
     Dosage: UNK
  4. OMEPRAZOLE [Concomitant]
     Indication: GASTRITIS
     Dosage: UNK
  5. PLAQUINOL [Concomitant]
     Indication: RHEUMATOID ARTHRITIS
     Dosage: UNK

REACTIONS (2)
  - GASTRITIS [None]
  - TACHYCARDIA [None]
